FAERS Safety Report 5960896-9 (Version None)
Quarter: 2008Q4

REPORT INFORMATION
  Report Type: 
  Country: None (occurrence: None)
  Receive Date: 20081121
  Receipt Date: 20081106
  Transmission Date: 20090506
  Serious: Yes (Other)
  Sender: FDA-Public Use
  Company Number: US-BAYER-200836346NA

PATIENT
  Sex: Female

DRUGS (5)
  1. BETASERON [Suspect]
     Indication: RELAPSING-REMITTING MULTIPLE SCLEROSIS
     Dates: end: 20070201
  2. KEPPRA [Concomitant]
     Indication: CONVULSION
  3. ZANTAC [Concomitant]
  4. ZANAFLEX [Concomitant]
  5. TYLENOL W/ CODEINE NO. 3 [Concomitant]
     Indication: PAIN

REACTIONS (2)
  - CONVULSION [None]
  - INJECTION SITE REACTION [None]
